FAERS Safety Report 7546113-7 (Version None)
Quarter: 2011Q2

REPORT INFORMATION
  Report Type: 
  Country: None (occurrence: None)
  Receive Date: 20110614
  Receipt Date: 20040123
  Transmission Date: 20111010
  Serious: Yes (Life-Threatening, Hospitalization)
  Sender: FDA-Public Use
  Company Number: PHFR2003GB04539

PATIENT
  Sex: Male

DRUGS (2)
  1. CLOZAPINE [Suspect]
     Indication: SCHIZOPHRENIA
     Dosage: 50MG MANE/ 150MG NOCTE
     Route: 048
     Dates: start: 20000725
  2. OMEPRAZOLE [Concomitant]
     Indication: PEPTIC ULCER
     Dosage: 20 MG/DAY
     Route: 048
     Dates: start: 19980101

REACTIONS (7)
  - LOWER RESPIRATORY TRACT INFECTION [None]
  - PYREXIA [None]
  - RESPIRATORY DEPRESSION [None]
  - ASTHENIA [None]
  - CLOSTRIDIAL INFECTION [None]
  - MOBILITY DECREASED [None]
  - PNEUMONIA [None]
